FAERS Safety Report 12392996 (Version 1)
Quarter: 2016Q2

REPORT INFORMATION
  Report Type: Report from Study
  Country: US (occurrence: US)
  Receive Date: 20160523
  Receipt Date: 20160523
  Transmission Date: 20160815
  Serious: No
  Sender: FDA-Public Use
  Company Number: ALCN2012US007199

PATIENT

DRUGS (2)
  1. SIMBRINZA [Suspect]
     Active Substance: BRIMONIDINE TARTRATE\BRINZOLAMIDE
     Indication: OCULAR HYPERTENSION
  2. SIMBRINZA [Suspect]
     Active Substance: BRIMONIDINE TARTRATE\BRINZOLAMIDE
     Indication: OPEN ANGLE GLAUCOMA
     Route: 047

REACTIONS (1)
  - Drug ineffective [Unknown]
